FAERS Safety Report 19762891 (Version 1)
Quarter: 2021Q3

REPORT INFORMATION
  Report Type: Spontaneous
  Country: US (occurrence: US)
  Receive Date: 20210830
  Receipt Date: 20210830
  Transmission Date: 20211014
  Serious: No
  Sender: FDA-Public Use
  Company Number: US-PFIZER INC-202101067523

PATIENT
  Age: 42 Year
  Sex: Female
  Weight: 51.29 kg

DRUGS (3)
  1. ANASTROZOLE. [Concomitant]
     Active Substance: ANASTROZOLE
     Dosage: UNK
  2. IBRANCE [Suspect]
     Active Substance: PALBOCICLIB
     Indication: BREAST CANCER
     Dosage: 125 MG, CYCLIC(1 DAILY FOR 21 DAYS)
     Route: 048
     Dates: start: 20210415
  3. MAGNESIUM [Concomitant]
     Active Substance: MAGNESIUM
     Dosage: UNK

REACTIONS (11)
  - Anal haemorrhage [Unknown]
  - Pain in extremity [Unknown]
  - Influenza like illness [Unknown]
  - Feeling abnormal [Unknown]
  - Rhinorrhoea [Unknown]
  - Cough [Unknown]
  - Irritability [Unknown]
  - Product dose omission issue [Unknown]
  - Faeces hard [Unknown]
  - Constipation [Unknown]
  - Suspected COVID-19 [Unknown]
